FAERS Safety Report 12124963 (Version 1)
Quarter: 2016Q1

REPORT INFORMATION
  Report Type: Spontaneous
  Country: US (occurrence: None)
  Receive Date: 20160226
  Receipt Date: 20160226
  Transmission Date: 20160526
  Serious: Yes (Hospitalization)
  Sender: FDA-Public Use
  Company Number: None

PATIENT
  Age: 67 Year
  Sex: Male
  Weight: 72.58 kg

DRUGS (18)
  1. FERROUS SULFATE [Concomitant]
     Active Substance: FERROUS SULFATE\FERROUS SULFATE, DRIED
  2. FLOGLITAZONE HCI [Concomitant]
  3. AVASTIN [Suspect]
     Active Substance: BEVACIZUMAB
     Indication: DIABETIC RETINAL OEDEMA
     Dosage: .05CC, QMD, IVT OU FOR STUDY: 10/15-1/16?PRIOR: LAST FIVE  YEARS
     Dates: start: 201510, end: 201601
  4. CYMBALTA [Concomitant]
     Active Substance: DULOXETINE HYDROCHLORIDE
  5. COLACE [Concomitant]
     Active Substance: DOCUSATE SODIUM
  6. HUMALOG KWIKPEN [Concomitant]
     Active Substance: INSULIN LISPRO
  7. BYSTOLIC [Concomitant]
     Active Substance: NEBIVOLOL HYDROCHLORIDE
  8. GABAPENTIN. [Concomitant]
     Active Substance: GABAPENTIN
  9. ATORVASTATIN CALCIUM. [Concomitant]
     Active Substance: ATORVASTATIN CALCIUM
  10. EC ASPRIN [Concomitant]
  11. LANTUS [Concomitant]
     Active Substance: INSULIN GLARGINE
  12. WELLBUTRIN [Concomitant]
     Active Substance: BUPROPION HYDROCHLORIDE
  13. MULTIVITAMIN [Concomitant]
     Active Substance: VITAMINS
  14. BENAZEPRIL [Concomitant]
     Active Substance: BENAZEPRIL HYDROCHLORIDE
  15. NORVASC [Concomitant]
     Active Substance: AMLODIPINE BESYLATE
  16. CALCITRIOL. [Concomitant]
     Active Substance: CALCITRIOL
  17. CALCIUM CITRATE [Concomitant]
     Active Substance: CALCIUM CITRATE
  18. PROTONIX [Concomitant]
     Active Substance: PANTOPRAZOLE SODIUM

REACTIONS (10)
  - Metabolic encephalopathy [None]
  - Azotaemia [None]
  - Renal impairment [None]
  - Asthenia [None]
  - Melaena [None]
  - Dialysis [None]
  - Hyperkalaemia [None]
  - Disorientation [None]
  - Hypoglycaemia [None]
  - Skin ulcer [None]

NARRATIVE: CASE EVENT DATE: 20160203
